FAERS Safety Report 24361150 (Version 1)
Quarter: 2024Q3

REPORT INFORMATION
  Report Type: Spontaneous
  Country: DK (occurrence: DK)
  Receive Date: 20240925
  Receipt Date: 20240925
  Transmission Date: 20241017
  Serious: Yes (Death, Congenital Anomaly, Other)
  Sender: TEVA
  Company Number: None

PATIENT

DRUGS (2)
  1. LEVETIRACETAM [Suspect]
     Active Substance: LEVETIRACETAM
     Indication: Epilepsy
     Dosage: DOSAGE: TOTAL DAILY DOSE: 1250 MG. UNKNOWN IF DIVIDED IN SEVERAL DOSES. STRENGTH: UNKNOWN
     Route: 064
     Dates: start: 20240814
  2. LEVETIRACETAM [Suspect]
     Active Substance: LEVETIRACETAM
     Indication: Epilepsy
     Dosage: DOSAGE: TOTAL DAILY DOSE: 1000 MG. UNKNOWN IF DIVIDED IN SEVERAL DOSES. STRENGTH: UNKNOWN
     Route: 064
     Dates: start: 20220622, end: 20240813

REACTIONS (2)
  - Neural tube defect [Fatal]
  - Foetal exposure during pregnancy [Recovered/Resolved]

NARRATIVE: CASE EVENT DATE: 20240101
